FAERS Safety Report 8094882-2 (Version None)
Quarter: 2012Q1

REPORT INFORMATION
  Report Type: 
  Country: None (occurrence: None)
  Receive Date: 20120130
  Receipt Date: 20120118
  Transmission Date: 20120608
  Serious: Yes (Hospitalization)
  Sender: FDA-Public Use
  Company Number: US-BIOGENIDEC-2009BI036323

PATIENT
  Sex: Female

DRUGS (2)
  1. AVONEX [Suspect]
     Indication: MULTIPLE SCLEROSIS
     Route: 030
     Dates: start: 19980101
  2. AVONEX [Suspect]
     Route: 030
     Dates: start: 20091024

REACTIONS (9)
  - POOR VENOUS ACCESS [None]
  - CYSTITIS [None]
  - GANGRENE [None]
  - DENTAL CARIES [None]
  - DYSURIA [None]
  - JOINT INJURY [None]
  - ABDOMINAL INFECTION [None]
  - GASTRIC CYST [None]
  - ABDOMINAL HERNIA [None]
